FAERS Safety Report 25617288 (Version 1)
Quarter: 2025Q3

REPORT INFORMATION
  Report Type: Spontaneous
  Country: EU (occurrence: EU)
  Receive Date: 20250729
  Receipt Date: 20250729
  Transmission Date: 20251021
  Serious: Yes (Hospitalization)
  Sender: TERSERA THERAPEUTICS
  Company Number: None

PATIENT

DRUGS (2)
  1. PRIALT [Interacting]
     Active Substance: ZICONOTIDE ACETATE
     Indication: Neuralgia
     Route: 037
     Dates: start: 20250521, end: 20250526
  2. MORPHINE HYDROCHLORIDE [Interacting]
     Active Substance: MORPHINE HYDROCHLORIDE
     Indication: Neuralgia
     Route: 037
     Dates: start: 20250521, end: 20250526

REACTIONS (2)
  - Posterior reversible encephalopathy syndrome [Recovered/Resolved]
  - Drug interaction [Unknown]

NARRATIVE: CASE EVENT DATE: 20250522
